FAERS Safety Report 20875340 (Version 1)
Quarter: 2022Q2

REPORT INFORMATION
  Report Type: Spontaneous
  Country: US (occurrence: US)
  Receive Date: 20220526
  Receipt Date: 20220526
  Transmission Date: 20220721
  Serious: Yes (Other)
  Sender: FDA-Public Use
  Company Number: US-CELLTRION INC.-2022US007236

PATIENT

DRUGS (1)
  1. TRUXIMA [Suspect]
     Active Substance: RITUXIMAB-ABBS
     Indication: Polymyositis
     Dosage: (10 MG PER ML EVERY 6 MONTHS, 1000 MG)
     Dates: start: 20220421

REACTIONS (2)
  - Polymyositis [Unknown]
  - Off label use [Unknown]
